FAERS Safety Report 4957358-4 (Version None)
Quarter: 2006Q1

REPORT INFORMATION
  Report Type: 
  Country: None (occurrence: None)
  Receive Date: 20060327
  Receipt Date: 20060315
  Transmission Date: 20060701
  Serious: Yes (Hospitalization)
  Sender: FDA-Public Use
  Company Number: L06-USA-01021-01

PATIENT
  Age: 41 Year
  Sex: Female

DRUGS (1)
  1. ESCITALOPRAM OXALATE [Suspect]
     Indication: MAJOR DEPRESSION
     Dosage: 10 MG QD

REACTIONS (8)
  - DEPRESSED MOOD [None]
  - DRY MOUTH [None]
  - DYSKINESIA [None]
  - DYSTONIA [None]
  - MUSCLE TWITCHING [None]
  - SUICIDAL IDEATION [None]
  - TARDIVE DYSKINESIA [None]
  - WEIGHT DECREASED [None]
